FAERS Safety Report 8809120 (Version 1)
Quarter: 2012Q4

REPORT INFORMATION
  Report Type: Spontaneous
  Country: US (occurrence: None)
  Receive Date: 20120920
  Receipt Date: 20120920
  Transmission Date: 20130627
  Serious: Yes (Other)
  Sender: FDA-Public Use
  Company Number: 20120570

PATIENT
  Sex: Female

DRUGS (1)
  1. DEXAMETHASONE [Suspect]
     Indication: STREPTOCOCCAL SORE THROAT
     Dosage: Unknown injection NOS
     Dates: start: 201011, end: 201011

REACTIONS (3)
  - Off label use [None]
  - Haemoptysis [None]
  - Unevaluable event [None]
